FAERS Safety Report 20351789 (Version 1)
Quarter: 2022Q1

REPORT INFORMATION
  Report Type: Spontaneous
  Country: HU (occurrence: HU)
  Receive Date: 20220119
  Receipt Date: 20220119
  Transmission Date: 20220423
  Serious: Yes (Hospitalization)
  Sender: FDA-Public Use
  Company Number: HU-BAYER-2021A254761

PATIENT
  Sex: Female

DRUGS (1)
  1. RIVAROXABAN [Suspect]
     Active Substance: RIVAROXABAN
     Indication: Product used for unknown indication
     Dosage: 20 MG, QD
     Route: 048

REACTIONS (5)
  - Iron deficiency anaemia [Unknown]
  - Malaise [Not Recovered/Not Resolved]
  - Swollen tongue [Unknown]
  - Dysphagia [Unknown]
  - Visual impairment [Unknown]
